FAERS Safety Report 4660467-0 (Version None)
Quarter: 2005Q2

REPORT INFORMATION
  Report Type: 
  Country: None (occurrence: None)
  Receive Date: 20050512
  Receipt Date: 20050430
  Transmission Date: 20051028
  Serious: Yes (Other)
  Sender: FDA-Public Use
  Company Number: GB-GLAXOSMITHKLINE-B0379752A

PATIENT
  Age: 62 Year
  Sex: Female
  Weight: 72 kg

DRUGS (8)
  1. CEFUROXIME SODIUM [Suspect]
     Route: 065
  2. SUXAMETHONIUM [Suspect]
     Route: 065
  3. ONDANSETRON [Suspect]
     Route: 065
  4. ATRACURIUM [Suspect]
     Route: 065
  5. CYMBALTA [Suspect]
     Indication: URINARY INCONTINENCE
     Dosage: 40MG UNKNOWN
     Route: 048
     Dates: start: 20041101
  6. FENTANYL [Suspect]
     Route: 065
  7. DESFLURANE [Suspect]
     Route: 065
  8. PROPOFOL [Suspect]
     Route: 065

REACTIONS (4)
  - ANAPHYLACTIC REACTION [None]
  - DRUG INTERACTION [None]
  - HYPOTENSION [None]
  - PROCEDURAL COMPLICATION [None]
